FAERS Safety Report 10494210 (Version 1)
Quarter: 2014Q4

REPORT INFORMATION
  Report Type: Spontaneous
  Country: US (occurrence: None)
  Receive Date: 20141002
  Receipt Date: 20141002
  Transmission Date: 20150528
  Serious: No
  Sender: FDA-Public Use
  Company Number: None

PATIENT
  Age: 43 Year
  Sex: Female
  Weight: 54.43 kg

DRUGS (1)
  1. AMOX-CLAV 875MG [Suspect]
     Active Substance: AMOXICILLIN\CLAVULANATE POTASSIUM
     Indication: SINUSITIS
     Dosage: 1, EVERY 12 HOURS, TAKEN BY MOUTH
     Route: 048
     Dates: start: 20140926, end: 20140930

REACTIONS (5)
  - Abdominal discomfort [None]
  - Dizziness [None]
  - Nausea [None]
  - Vision blurred [None]
  - Insomnia [None]

NARRATIVE: CASE EVENT DATE: 20140926
